FAERS Safety Report 17024826 (Version 1)
Quarter: 2019Q4

REPORT INFORMATION
  Report Type: Report from Study
  Country: DE (occurrence: DE)
  Receive Date: 20191113
  Receipt Date: 20191113
  Transmission Date: 20200122
  Serious: Yes (Other)
  Sender: FDA-Public Use
  Company Number: PHHY2016DE119491

PATIENT
  Sex: Male

DRUGS (7)
  1. GILENYA [Suspect]
     Active Substance: FINGOLIMOD HYDROCHLORIDE
     Indication: MULTIPLE SCLEROSIS
     Dosage: 0.5 MG, QD
     Route: 048
     Dates: start: 20151228
  2. IBUPROFEN. [Concomitant]
     Active Substance: IBUPROFEN
     Indication: ARTHRALGIA
     Dosage: 800 MG, PRN
     Route: 065
     Dates: start: 20111117
  3. GILENYA [Suspect]
     Active Substance: FINGOLIMOD HYDROCHLORIDE
     Dosage: 0.5 MG, EVERY OTHER DAY
     Route: 048
  4. OPIPRAMOL [Concomitant]
     Active Substance: OPIPRAMOL
     Indication: SLEEP DISORDER
     Dosage: 100 MG, PRN
     Route: 065
     Dates: start: 20131212
  5. AMLODIPINE [Concomitant]
     Active Substance: AMLODIPINE BESYLATE
     Indication: HYPERTENSION
     Dosage: 5 G, UNK
     Route: 065
     Dates: start: 20170306, end: 20170327
  6. SALUTEC [Concomitant]
     Active Substance: HYDROCHLOROTHIAZIDE\RAMIPRIL
     Indication: HYPERTENSION
     Dosage: 5MG/12.5MG
     Route: 065
     Dates: start: 20111215
  7. MIRTAZAPINE. [Concomitant]
     Active Substance: MIRTAZAPINE
     Indication: SLEEP DISORDER
     Dosage: 7.5 OT, UNK
     Route: 065
     Dates: start: 20170306, end: 20170327

REACTIONS (6)
  - Fatigue [Not Recovered/Not Resolved]
  - Lymphocyte count decreased [Unknown]
  - Muscle tightness [Recovered/Resolved]
  - Hypertension [Unknown]
  - Hepatic enzyme increased [Unknown]
  - Dyspnoea exertional [Recovered/Resolved]

NARRATIVE: CASE EVENT DATE: 20160404
